FAERS Safety Report 5424936-8 (Version None)
Quarter: 2007Q3

REPORT INFORMATION
  Report Type: 
  Country: None (occurrence: None)
  Receive Date: 20070824
  Receipt Date: 20070814
  Transmission Date: 20080115
  Serious: Yes (Death, Hospitalization)
  Sender: FDA-Public Use
  Company Number: US-BRISTOL-MYERS SQUIBB COMPANY-13876883

PATIENT
  Age: 64 Year
  Sex: Female

DRUGS (2)
  1. IXABEPILONE [Suspect]
     Indication: PANCREATIC CARCINOMA
     Route: 042
     Dates: start: 20070719, end: 20070719
  2. CETUXIMAB [Suspect]
     Indication: PANCREATIC CARCINOMA
     Route: 042
     Dates: start: 20070726, end: 20070726

REACTIONS (3)
  - ABDOMINAL PAIN [None]
  - GASTROINTESTINAL PERFORATION [None]
  - MULTI-ORGAN FAILURE [None]
